FAERS Safety Report 9445238 (Version 9)
Quarter: 2013Q4

REPORT INFORMATION
  Report Type: Report from Study
  Country: US (occurrence: US)
  Receive Date: 20130807
  Receipt Date: 20131219
  Transmission Date: 20140711
  Serious: Yes (Hospitalization, Other)
  Sender: FDA-Public Use
  Company Number: US-ACTELION-A-US2013-86563

PATIENT
  Age: 51 Year
  Sex: Female

DRUGS (5)
  1. VELETRI [Suspect]
     Indication: PORTOPULMONARY HYPERTENSION
     Dosage: 12 NG/KG, PER MIN
     Route: 042
     Dates: start: 20130724
  2. VELETRI [Suspect]
     Dosage: UNK
     Route: 042
  3. COUMADIN [Concomitant]
  4. OXYGEN [Concomitant]
  5. IRON [Concomitant]

REACTIONS (21)
  - Renal failure chronic [Recovering/Resolving]
  - Dialysis [Unknown]
  - Hepatic failure [Unknown]
  - Hypercalcaemia [Recovering/Resolving]
  - Diarrhoea [Recovering/Resolving]
  - Nausea [Recovering/Resolving]
  - Dyspnoea [Unknown]
  - Panic attack [Unknown]
  - Transfusion [Unknown]
  - Abdominal discomfort [Unknown]
  - Fear [Unknown]
  - Device alarm issue [Unknown]
  - Epistaxis [Recovering/Resolving]
  - Oedema peripheral [Unknown]
  - Headache [Unknown]
  - Cough [Unknown]
  - Dermatitis contact [Unknown]
  - Vomiting [Recovering/Resolving]
  - Increased upper airway secretion [Unknown]
  - Haematochezia [Recovering/Resolving]
  - Catheter site erythema [Recovered/Resolved]
